FAERS Safety Report 8830362 (Version 4)
Quarter: 2013Q1

REPORT INFORMATION
  Report Type: Spontaneous
  Country: US (occurrence: US)
  Receive Date: 20121009
  Receipt Date: 20130117
  Transmission Date: 20140127
  Serious: Yes (Hospitalization, Disabling, Other)
  Sender: FDA-Public Use
  Company Number: US-009507513-1205USA00978

PATIENT
  Sex: 0

DRUGS (7)
  1. FOSAMAX [Suspect]
     Dosage: UNK
     Route: 048
     Dates: start: 1995, end: 2010
  2. FOSAMAX [Suspect]
     Indication: OSTEOPOROSIS
     Dosage: UNK
     Route: 048
     Dates: start: 1995, end: 2010
  3. FOSAMAX [Suspect]
     Dosage: 70 MG, UNK
     Route: 048
  4. FOSAMAX [Suspect]
     Dosage: 75 MG, UNK
     Route: 048
  5. FOSAMAX D [Suspect]
     Route: 048
     Dates: end: 20100101
  6. ACTONEL [Suspect]
     Dates: start: 1995, end: 2010
  7. ALENDRONATE SODIUM [Suspect]
     Dosage: 70 MG, UNK

REACTIONS (46)
  - Low turnover osteopathy [Not Recovered/Not Resolved]
  - Knee arthroplasty [Unknown]
  - Knee arthroplasty [Unknown]
  - Cardiac operation [Unknown]
  - Surgery [Unknown]
  - Surgery [Unknown]
  - Renal failure chronic [Not Recovered/Not Resolved]
  - Closed fracture manipulation [Unknown]
  - Spinal fusion surgery [Unknown]
  - Jaw disorder [Unknown]
  - Oral surgery [Unknown]
  - Femur fracture [Not Recovered/Not Resolved]
  - Osteonecrosis of jaw [Unknown]
  - Dental implantation [Unknown]
  - Blood pressure increased [Unknown]
  - Arthropathy [Unknown]
  - Lumbar spinal stenosis [Unknown]
  - Spinal osteoarthritis [Unknown]
  - Fall [Unknown]
  - Osteopenia [Unknown]
  - Osteoarthritis [Unknown]
  - Escherichia urinary tract infection [Unknown]
  - Haemorrhagic anaemia [Unknown]
  - Hypotension [Unknown]
  - Gingival bleeding [Unknown]
  - Lichen planus [Unknown]
  - Inappropriate schedule of drug administration [Unknown]
  - Vitamin D deficiency [Unknown]
  - Gingival infection [Unknown]
  - Spinal osteoarthritis [Unknown]
  - Joint injury [Unknown]
  - Coronary artery disease [Unknown]
  - Hyperlipidaemia [Unknown]
  - Pain [Not Recovered/Not Resolved]
  - Anxiety [Unknown]
  - Depression [Unknown]
  - Hypertension [Unknown]
  - Incision site haemorrhage [Unknown]
  - Urinary incontinence [Unknown]
  - Insomnia [Unknown]
  - Ecchymosis [Unknown]
  - Pollakiuria [Unknown]
  - Arrhythmia [Unknown]
  - Pain in extremity [Unknown]
  - Musculoskeletal pain [Unknown]
  - Oedema peripheral [Unknown]
